FAERS Safety Report 9848366 (Version 1)
Quarter: 2014Q1

REPORT INFORMATION
  Report Type: Spontaneous
  Country: FR (occurrence: FR)
  Receive Date: 20140128
  Receipt Date: 20140128
  Transmission Date: 20141002
  Serious: Yes (Hospitalization)
  Sender: FDA-Public Use
  Company Number: FR-JNJFOC-20140112243

PATIENT
  Age: 50 Year
  Sex: Male

DRUGS (7)
  1. XARELTO [Suspect]
     Indication: EMBOLISM VENOUS
     Route: 048
     Dates: start: 20131018, end: 20131216
  2. XARELTO [Suspect]
     Indication: VENOUS THROMBOSIS
     Route: 048
     Dates: start: 20131018, end: 20131216
  3. HEPARIN [Concomitant]
     Indication: VENOUS THROMBOSIS
     Route: 065
  4. VALIUM [Concomitant]
     Route: 065
  5. TANAKAN [Concomitant]
     Route: 065
  6. AOTAL [Concomitant]
     Route: 065
  7. DEPAMIDE [Concomitant]
     Route: 065

REACTIONS (1)
  - Thrombocytopenia [Recovered/Resolved]
